FAERS Safety Report 5553878-2 (Version None)
Quarter: 2007Q4

REPORT INFORMATION
  Report Type: 
  Country: None (occurrence: None)
  Receive Date: 20071212
  Receipt Date: 20071212
  Transmission Date: 20080405
  Serious: Yes (Other)
  Sender: FDA-Public Use
  Company Number: None

PATIENT
  Age: 73 Year
  Sex: Female

DRUGS (1)
  1. ZOSYN [Suspect]
     Indication: PNEUMONIA
     Dosage: 4.5 GM IVPB Q6H IVPB  ONE DOSE
     Route: 042
     Dates: start: 20070816

REACTIONS (4)
  - DYSPNOEA [None]
  - FLUSHING [None]
  - PRURITUS [None]
  - RASH [None]
